FAERS Safety Report 4779808-9 (Version None)
Quarter: 2005Q3

REPORT INFORMATION
  Report Type: 
  Country: None (occurrence: None)
  Receive Date: 20050927
  Receipt Date: 20050919
  Transmission Date: 20060218
  Serious: Yes (Hospitalization)
  Sender: FDA-Public Use
  Company Number: US-JNJFOC-20050904886

PATIENT
  Age: 86 Year
  Sex: Female

DRUGS (3)
  1. DURAGESIC-100 [Suspect]
     Route: 062
  2. VICODIN [Concomitant]
     Route: 048
  3. VICODIN [Concomitant]
     Indication: PAIN
     Dosage: 3 TO 4 TIMES DAILY
     Route: 048

REACTIONS (3)
  - DEPRESSION [None]
  - FALL [None]
  - HIP FRACTURE [None]
